FAERS Safety Report 4334707-1 (Version None)
Quarter: 2004Q2

REPORT INFORMATION
  Report Type: 
  Country: None (occurrence: None)
  Receive Date: 20040407
  Receipt Date: 20040407
  Transmission Date: 20050107
  Serious: Yes (Hospitalization)
  Sender: FDA-Public Use
  Company Number: None

PATIENT
  Age: 83 Year
  Sex: Female

DRUGS (6)
  1. EXEMESTANE [Suspect]
     Indication: BREAST CANCER
     Dosage: 25 MG DAILY PO
     Route: 048
     Dates: start: 20040219
  2. ZESTRIL [Concomitant]
  3. SURFAK [Concomitant]
  4. DARVOCET-N 100 [Concomitant]
  5. DULCOLAX [Concomitant]
  6. MARINOL [Concomitant]

REACTIONS (1)
  - DEEP VEIN THROMBOSIS [None]
